FAERS Safety Report 15516819 (Version 2)
Quarter: 2018Q4

REPORT INFORMATION
  Report Type: Spontaneous
  Country: TR (occurrence: TR)
  Receive Date: 20181017
  Receipt Date: 20181120
  Transmission Date: 20190205
  Serious: Yes (Other)
  Sender: FDA-Public Use
  Company Number: TR-SA-2018SA287192

PATIENT
  Age: 22 Year
  Sex: Female

DRUGS (6)
  1. PERTUZUMAB. [Interacting]
     Active Substance: PERTUZUMAB
     Indication: BREAST CANCER
     Dosage: 840 MG, LOADING DOSE
     Dates: start: 201609
  2. TRASTUZUMAB. [Interacting]
     Active Substance: TRASTUZUMAB
     Dosage: 6 MG/KG, MAINTENANCE DOSE
  3. DOCETAXEL. [Suspect]
     Active Substance: DOCETAXEL
     Indication: BREAST CANCER
     Dosage: 75 MG/M2
     Dates: start: 201609
  4. TRASTUZUMAB. [Interacting]
     Active Substance: TRASTUZUMAB
     Indication: BREAST CANCER
     Dosage: 8 MG/KG, LOADING DOSE
     Dates: start: 201609
  5. PERTUZUMAB. [Interacting]
     Active Substance: PERTUZUMAB
     Dosage: 420 MG, MAINTENANCE DOSE, IN EVERY 21 DAYS
  6. ZOLEDRONIC ACID. [Suspect]
     Active Substance: ZOLEDRONIC ACID
     Indication: BREAST CANCER
     Dosage: 4 MG, QM
     Dates: start: 201609

REACTIONS (6)
  - Abortion induced [Unknown]
  - Foetal movement disorder [Unknown]
  - Exposure during pregnancy [Unknown]
  - Abdominal distension [Unknown]
  - Oligohydramnios [Unknown]
  - Drug interaction [Unknown]
